FAERS Safety Report 12341423 (Version 4)
Quarter: 2016Q2

REPORT INFORMATION
  Report Type: Spontaneous
  Country: FR (occurrence: FR)
  Receive Date: 20160506
  Receipt Date: 20160622
  Transmission Date: 20160815
  Serious: Yes (Hospitalization)
  Sender: FDA-Public Use
  Company Number: FR-PFIZER INC-2016237680

PATIENT
  Age: 78 Year
  Sex: Female

DRUGS (20)
  1. PLAVIX [Suspect]
     Active Substance: CLOPIDOGREL BISULFATE
     Indication: INFARCTION
     Dosage: 75 MG, DAILY
     Route: 048
     Dates: start: 20160322, end: 20160410
  2. PERINDOPRIL [Suspect]
     Active Substance: PERINDOPRIL
     Indication: INFARCTION
     Dosage: 2 MG, DAILY
     Route: 048
     Dates: start: 20160322, end: 20160410
  3. FOSINOPRIL [Concomitant]
     Active Substance: FOSINOPRIL
     Dosage: UNK
     Dates: start: 201603, end: 201603
  4. ADENOSINE. [Concomitant]
     Active Substance: ADENOSINE
     Dosage: UNK
     Dates: start: 20160322
  5. LASILIX [Concomitant]
     Active Substance: FUROSEMIDE
     Dosage: UNK
     Dates: start: 20160322, end: 20160329
  6. EUPANTOL [Concomitant]
     Active Substance: PANTOPRAZOLE SODIUM
     Dosage: UNK
     Dates: end: 20160410
  7. INSPRA [Suspect]
     Active Substance: EPLERENONE
     Indication: CARDIAC FAILURE
     Dosage: 25 MG, DAILY
     Route: 048
     Dates: start: 20160322, end: 20160410
  8. BISOPROLOL [Concomitant]
     Active Substance: BISOPROLOL
     Dosage: UNK
  9. IXPRIM [Concomitant]
     Active Substance: ACETAMINOPHEN\TRAMADOL HYDROCHLORIDE
     Dosage: UNK
  10. DOLIPRANE [Concomitant]
     Active Substance: ACETAMINOPHEN
     Dosage: UNK
  11. TAHOR [Suspect]
     Active Substance: ATORVASTATIN CALCIUM
     Indication: INFARCTION
     Dosage: 80 MG, DAILY
     Route: 048
     Dates: start: 20160322, end: 20160410
  12. XARELTO [Concomitant]
     Active Substance: RIVAROXABAN
     Dosage: UNK
     Dates: end: 20160410
  13. BIVALIRUDIN. [Concomitant]
     Active Substance: BIVALIRUDIN
     Dosage: UNK
     Dates: start: 20160322
  14. KARDEGIC [Concomitant]
     Active Substance: ASPIRIN LYSINE
     Dosage: UNK
     Dates: start: 20160322
  15. RAMIPRIL. [Suspect]
     Active Substance: RAMIPRIL
     Indication: INFARCTION
     Dosage: UNK
     Route: 048
     Dates: start: 20160329, end: 20160410
  16. REOPRO [Suspect]
     Active Substance: ABCIXIMAB
     Indication: CORONARY ARTERIAL STENT INSERTION
     Dosage: UNK, SINGLE
     Route: 042
     Dates: start: 20160322, end: 20160322
  17. ALPRAZOLAM. [Concomitant]
     Active Substance: ALPRAZOLAM
     Dosage: UNK
  18. EUPANTOL [Concomitant]
     Active Substance: PANTOPRAZOLE SODIUM
     Dosage: UNK
     Dates: start: 20160412
  19. UVEDOSE [Concomitant]
     Active Substance: CHOLECALCIFEROL
     Dosage: UNK
  20. MOVICOL [Concomitant]
     Active Substance: POLYETHYLENE GLYCOL 3350\POTASSIUM CHLORIDE\SODIUM BICARBONATE\SODIUM CHLORIDE
     Dosage: UNK

REACTIONS (3)
  - Thrombocytopenia [Recovering/Resolving]
  - Gingival bleeding [Recovered/Resolved]
  - Thrombocytopenic purpura [Unknown]

NARRATIVE: CASE EVENT DATE: 20160408
